FAERS Safety Report 9725470 (Version 2)
Quarter: 2013Q4

REPORT INFORMATION
  Report Type: Spontaneous
  Country: DE (occurrence: DE)
  Receive Date: 20131203
  Receipt Date: 20131203
  Transmission Date: 20140711
  Serious: Yes (Other)
  Sender: FDA-Public Use
  Company Number: DE-CELGENEUS-062-21660-13014270

PATIENT
  Sex: Female

DRUGS (12)
  1. ABRAXANE [Suspect]
     Indication: BREAST CANCER
     Dosage: 150 MILLIGRAM/SQ. METER
     Route: 041
  2. ABRAXANE [Suspect]
     Dosage: 100 MILLIGRAM/SQ. METER
     Route: 041
  3. EPIRUBICIN [Concomitant]
     Indication: BREAST CANCER
     Dosage: 90 MILLIGRAM/SQ. METER
     Route: 065
  4. CYCLOPHOSPHAMIDE [Concomitant]
     Indication: BREAST CANCER
     Dosage: 600 MILLIGRAM/SQ. METER
     Route: 065
  5. 5-FU [Concomitant]
     Indication: PRODUCT USED FOR UNKNOWN INDICATION
     Route: 065
  6. LAPATINIB [Concomitant]
     Indication: PRODUCT USED FOR UNKNOWN INDICATION
     Dosage: 750 MILLIGRAM
     Route: 065
  7. LAPATINIB [Concomitant]
     Dosage: 500 MILLIGRAM
     Route: 065
  8. HERCEPTIN [Concomitant]
     Indication: PRODUCT USED FOR UNKNOWN INDICATION
     Route: 065
  9. HERCEPTIN [Concomitant]
     Route: 065
  10. HERCEPTIN [Concomitant]
     Route: 065
  11. NOVALGIN [Concomitant]
     Indication: PREMEDICATION
     Route: 065
  12. TANTUM VERDE [Concomitant]
     Indication: PROPHYLAXIS
     Route: 065

REACTIONS (10)
  - Hypermetropia [Recovered/Resolved]
  - Skin reaction [Unknown]
  - Palmar-plantar erythrodysaesthesia syndrome [Unknown]
  - Peripheral sensory neuropathy [Recovering/Resolving]
  - Fatigue [Unknown]
  - Leukopenia [Unknown]
  - Mucosal inflammation [Unknown]
  - Nausea [Unknown]
  - Hypoaesthesia [Unknown]
  - Anaemia [Unknown]
